FAERS Safety Report 4472590-4 (Version None)
Quarter: 2004Q4

REPORT INFORMATION
  Report Type: 
  Country: None (occurrence: None)
  Receive Date: 20041008
  Receipt Date: 20040921
  Transmission Date: 20050328
  Serious: Yes (Death)
  Sender: FDA-Public Use
  Company Number: FR_040904844

PATIENT
  Age: 26 Year
  Sex: Female

DRUGS (7)
  1. ZYPREXA [Suspect]
     Indication: SCHIZOPHRENIA
     Dosage: 20 MG/1 DAY
     Dates: start: 20040101
  2. PROZAC [Suspect]
     Dosage: 20 MG/1 DAY
     Dates: start: 20040101
  3. TERCIAN (CYAMEMAZINE) [Concomitant]
  4. IMOVANE (ZOPICLONE) [Concomitant]
  5. LYSANXIA (PRAZEPAM) [Concomitant]
  6. METHADONE HCL [Concomitant]
  7. SUBUTEX [Concomitant]

REACTIONS (1)
  - DEATH [None]
